FAERS Safety Report 10830892 (Version 1)
Quarter: 2015Q1

REPORT INFORMATION
  Report Type: Report from Study
  Country: US (occurrence: US)
  Receive Date: 20150219
  Receipt Date: 20150219
  Transmission Date: 20150721
  Serious: No
  Sender: FDA-Public Use
  Company Number: US-ABBVIE-14P-163-1192719-00

PATIENT
  Age: 49 Year
  Sex: Female

DRUGS (16)
  1. SINGULAIR [Concomitant]
     Active Substance: MONTELUKAST SODIUM
     Indication: SEASONAL ALLERGY
  2. CLARITIN [Concomitant]
     Active Substance: LORATADINE
     Indication: SINUS DISORDER
     Dosage: GENERIC OTC
  3. NORCO [Concomitant]
     Active Substance: ACETAMINOPHEN\HYDROCODONE BITARTRATE
     Indication: NECK PAIN
     Dosage: 10/325 MG
  4. TOPROL XL [Concomitant]
     Active Substance: METOPROLOL SUCCINATE
     Indication: HYPERTENSION
  5. HUMIRA [Suspect]
     Active Substance: ADALIMUMAB
     Dates: start: 20140129, end: 20140129
  6. IMURAN [Suspect]
     Active Substance: AZATHIOPRINE
     Indication: PRODUCT USED FOR UNKNOWN INDICATION
     Dates: start: 20140207
  7. ROBAXIN [Concomitant]
     Active Substance: METHOCARBAMOL
     Indication: NECK SURGERY
  8. HUMIRA [Suspect]
     Active Substance: ADALIMUMAB
     Indication: COLITIS ULCERATIVE
     Dosage: LOADING DOSE
     Dates: start: 20140115, end: 20140115
  9. HUMIRA [Suspect]
     Active Substance: ADALIMUMAB
     Dates: start: 20140212
  10. ELAVIL [Concomitant]
     Active Substance: AMITRIPTYLINE HYDROCHLORIDE
     Indication: GASTROINTESTINAL DISORDER
     Dosage: AT NIGHT
  11. SYNTHROID [Concomitant]
     Active Substance: LEVOTHYROXINE SODIUM
     Indication: THYROID DISORDER
  12. ROBAXIN [Concomitant]
     Active Substance: METHOCARBAMOL
     Indication: MUSCLE RELAXANT THERAPY
  13. ZANTAC [Concomitant]
     Active Substance: RANITIDINE HYDROCHLORIDE
     Indication: GASTRITIS
  14. ENTOCORT EC [Concomitant]
     Active Substance: BUDESONIDE
     Indication: COLITIS
  15. CENESTIN [Concomitant]
     Active Substance: ESTROGENS, CONJUGATED SYNTHETIC A
     Indication: HYSTERECTOMY
  16. ZANTAC [Concomitant]
     Active Substance: RANITIDINE HYDROCHLORIDE
     Indication: GASTRITIS

REACTIONS (14)
  - Nausea [Not Recovered/Not Resolved]
  - Injection site pain [Not Recovered/Not Resolved]
  - Injection site pruritus [Not Recovered/Not Resolved]
  - Injection site erythema [Not Recovered/Not Resolved]
  - Injection site erythema [Not Recovered/Not Resolved]
  - Abdominal pain [Not Recovered/Not Resolved]
  - Injection site erythema [Not Recovered/Not Resolved]
  - Injection site pain [Not Recovered/Not Resolved]
  - Injection site pain [Not Recovered/Not Resolved]
  - Injection site pruritus [Not Recovered/Not Resolved]
  - Injection site warmth [Unknown]
  - Injection site swelling [Not Recovered/Not Resolved]
  - Injection site pruritus [Recovered/Resolved]
  - Injection site pain [Recovered/Resolved]

NARRATIVE: CASE EVENT DATE: 20140115
